FAERS Safety Report 5957110-7 (Version None)
Quarter: 2008Q4

REPORT INFORMATION
  Report Type: 
  Country: None (occurrence: None)
  Receive Date: 20081118
  Receipt Date: 20081107
  Transmission Date: 20090506
  Serious: Yes (Death)
  Sender: FDA-Public Use
  Company Number: BE-ROCHE-595942

PATIENT
  Age: 77 Year
  Sex: Female

DRUGS (1)
  1. MIRCERA [Suspect]
     Dosage: TAKEN ONCE
     Route: 042
     Dates: start: 20081105, end: 20081105

REACTIONS (1)
  - ANAPHYLACTIC SHOCK [None]
